FAERS Safety Report 4275455-6 (Version None)
Quarter: 2004Q1

REPORT INFORMATION
  Report Type: 
  Country: None (occurrence: None)
  Receive Date: 20040121
  Receipt Date: 20031205
  Transmission Date: 20041129
  Serious: Yes (Hospitalization)
  Sender: FDA-Public Use
  Company Number: 200314621FR

PATIENT
  Age: 49 Year
  Sex: Male

DRUGS (4)
  1. LOVENOX [Suspect]
     Indication: TRANSIENT ISCHAEMIC ATTACK
     Route: 058
     Dates: start: 20020520, end: 20020606
  2. PREVISCAN [Suspect]
     Indication: ARRHYTHMIA
     Route: 048
     Dates: start: 20020530, end: 20020607
  3. SINTROM [Concomitant]
     Route: 048
     Dates: start: 20020607
  4. ASPEGIC 1000 [Concomitant]
     Route: 048

REACTIONS (1)
  - CYTOLYTIC HEPATITIS [None]
